FAERS Safety Report 11698025 (Version 1)
Quarter: 2015Q4

REPORT INFORMATION
  Report Type: Spontaneous
  Country: IT (occurrence: IT)
  Receive Date: 20151104
  Receipt Date: 20151104
  Transmission Date: 20160304
  Serious: Yes (Other)
  Sender: FDA-Public Use
  Company Number: IT-SHIRE-IT201513549

PATIENT
  Sex: Female

DRUGS (3)
  1. MESAVANCOL [Suspect]
     Active Substance: MESALAMINE
     Indication: COLITIS ULCERATIVE
     Dosage: 2.4 G (TWO 1.2 G TABLETS), UNKNOWN
     Route: 048
     Dates: start: 2010, end: 201508
  2. MESAVANCOL [Suspect]
     Active Substance: MESALAMINE
     Dosage: 3.6 G (THREE 1.2 G TABLETS), UNKNOWN
     Route: 048
     Dates: start: 201508, end: 20150906
  3. POLASE [Concomitant]
     Active Substance: MAGNESIUM ASPARTATE\POTASSIUM ASPARTATE
     Indication: PRODUCT USED FOR UNKNOWN INDICATION
     Dosage: UNK, UNKNOWN
     Route: 065

REACTIONS (3)
  - Cholestasis [Unknown]
  - Transaminases increased [Unknown]
  - Colitis ulcerative [Unknown]

NARRATIVE: CASE EVENT DATE: 201508
